FAERS Safety Report 5819581-6 (Version None)
Quarter: 2008Q3

REPORT INFORMATION
  Report Type: 
  Country: None (occurrence: None)
  Receive Date: 20080717
  Receipt Date: 20080707
  Transmission Date: 20090109
  Serious: Yes (Death)
  Sender: FDA-Public Use
  Company Number: 002071

PATIENT
  Age: 9 Year
  Sex: Female

DRUGS (9)
  1. BUSULFEX [Suspect]
     Indication: STEM CELL TRANSPLANT
     Dosage: 11.1 ML, INTRAVENOUS, 14.8 ML DAILY DOSE; INTRAVENOUS, 3.7 ML, DAILY DOSE; INTRAVENOUS
     Route: 042
     Dates: start: 20070215, end: 20070215
  2. BUSULFEX [Suspect]
     Indication: STEM CELL TRANSPLANT
     Dosage: 11.1 ML, INTRAVENOUS, 14.8 ML DAILY DOSE; INTRAVENOUS, 3.7 ML, DAILY DOSE; INTRAVENOUS
     Route: 042
     Dates: start: 20070216, end: 20070218
  3. BUSULFEX [Suspect]
     Indication: STEM CELL TRANSPLANT
     Dosage: 11.1 ML, INTRAVENOUS, 14.8 ML DAILY DOSE; INTRAVENOUS, 3.7 ML, DAILY DOSE; INTRAVENOUS
     Route: 042
     Dates: start: 20070219, end: 20070219
  4. CYTARABINE [Concomitant]
  5. MELPHALAN (MELPHALAN) [Concomitant]
  6. ETOPOSIDE [Concomitant]
  7. VALPROATE SODIUM [Concomitant]
  8. METHOTREXATE [Concomitant]
  9. TACROLIMIS (TACROLIMUS) [Concomitant]

REACTIONS (10)
  - ACUTE MYELOID LEUKAEMIA [None]
  - ANOREXIA [None]
  - BONE MARROW TRANSPLANT [None]
  - CONDITION AGGRAVATED [None]
  - CYSTITIS HAEMORRHAGIC [None]
  - DIARRHOEA [None]
  - MALAISE [None]
  - NAUSEA [None]
  - STOMATITIS [None]
  - VOMITING [None]
